FAERS Safety Report 22975960 (Version 3)
Quarter: 2024Q1

REPORT INFORMATION
  Report Type: Report from Study
  Country: US (occurrence: US)
  Receive Date: 20230925
  Receipt Date: 20240320
  Transmission Date: 20240410
  Serious: Yes (Hospitalization)
  Sender: FDA-Public Use
  Company Number: US-ACADIA PHARMACEUTICALS INC.-ACA-2023-PIM-003316

PATIENT
  Sex: Male

DRUGS (15)
  1. NUPLAZID [Suspect]
     Active Substance: PIMAVANSERIN TARTRATE
     Indication: Parkinson^s disease psychosis
     Dosage: 34 MILLIGRAM, QD
     Route: 048
  2. NUPLAZID [Suspect]
     Active Substance: PIMAVANSERIN TARTRATE
     Indication: Parkinson^s disease psychosis
     Dosage: 10 MILLIGRAM, QD
     Route: 048
  3. ELIQUIS [Concomitant]
     Active Substance: APIXABAN
  4. CLONAZEPAM [Concomitant]
     Active Substance: CLONAZEPAM
  5. ATORVASTATIN [Concomitant]
     Active Substance: ATORVASTATIN
  6. MIDODRINE [Concomitant]
     Active Substance: MIDODRINE
  7. TAMSULOSIN [Concomitant]
     Active Substance: TAMSULOSIN
  8. PACERONE [Concomitant]
     Active Substance: AMIODARONE HYDROCHLORIDE
  9. FINASTERIDE [Concomitant]
     Active Substance: FINASTERIDE
  10. ASPIRIN [Concomitant]
     Active Substance: ASPIRIN
  11. AZITHROMYCIN [Concomitant]
     Active Substance: AZITHROMYCIN
  12. OXYBUTYNIN [Concomitant]
     Active Substance: OXYBUTYNIN\OXYBUTYNIN CHLORIDE
  13. METOPROLOL [Concomitant]
     Active Substance: METOPROLOL
  14. CARBIDOPA [Concomitant]
     Active Substance: CARBIDOPA
  15. MELOXICAM [Concomitant]
     Active Substance: MELOXICAM

REACTIONS (5)
  - Hospitalisation [Not Recovered/Not Resolved]
  - Hallucination [Unknown]
  - Hallucination [Unknown]
  - Product dose omission issue [Not Recovered/Not Resolved]
  - Drug ineffective [Unknown]
